FAERS Safety Report 20845103 (Version 1)
Quarter: 2022Q2

REPORT INFORMATION
  Report Type: Spontaneous
  Country: US (occurrence: None)
  Receive Date: 20220517
  Receipt Date: 20220517
  Transmission Date: 20220721
  Serious: Yes (Life-Threatening, Hospitalization)
  Sender: FDA-Public Use
  Company Number: None

PATIENT
  Age: 72 Year
  Sex: Female
  Weight: 65.8 kg

DRUGS (1)
  1. EVUSHELD [Suspect]
     Active Substance: CILGAVIMAB\TIXAGEVIMAB
     Indication: Exposure to SARS-CoV-2
     Dates: start: 20220506

REACTIONS (6)
  - Neck pain [None]
  - Throat tightness [None]
  - Dyspnoea [None]
  - Dysphagia [None]
  - Swollen tongue [None]
  - Anaphylactic reaction [None]

NARRATIVE: CASE EVENT DATE: 20220506
